FAERS Safety Report 12975034 (Version 1)
Quarter: 2016Q4

REPORT INFORMATION
  Report Type: Spontaneous
  Country: CH (occurrence: CH)
  Receive Date: 20161125
  Receipt Date: 20161125
  Transmission Date: 20170207
  Serious: Yes (Hospitalization)
  Sender: FDA-Public Use
  Company Number: CH-ROCHE-1858734

PATIENT
  Age: 53 Year
  Sex: Female
  Weight: 77.2 kg

DRUGS (7)
  1. DAFALGAN [Concomitant]
     Active Substance: ACETAMINOPHEN
     Route: 048
  2. PERJETA [Suspect]
     Active Substance: PERTUZUMAB
     Indication: METASTASES TO LIVER
     Route: 041
     Dates: start: 20131126
  3. HERCEPTIN [Suspect]
     Active Substance: TRASTUZUMAB
     Indication: METASTASES TO LIVER
     Route: 041
     Dates: start: 20131126
  4. XARELTO [Suspect]
     Active Substance: RIVAROXABAN
     Indication: THROMBOSIS PROPHYLAXIS
     Route: 048
     Dates: start: 20151023
  5. LYRICA [Concomitant]
     Active Substance: PREGABALIN
     Route: 048
  6. TRAMADOL-MEPHA [Concomitant]
     Active Substance: TRAMADOL
     Route: 048
  7. CIMIFEMIN FORTE [Suspect]
     Active Substance: BLACK COHOSH
     Indication: MENOPAUSAL SYMPTOMS
     Route: 048
     Dates: start: 20160930, end: 20161001

REACTIONS (5)
  - Liver injury [Recovering/Resolving]
  - Blood lactate dehydrogenase increased [None]
  - Aspartate aminotransferase increased [None]
  - Decreased appetite [Recovered/Resolved]
  - Alanine aminotransferase increased [None]

NARRATIVE: CASE EVENT DATE: 20160930
